FAERS Safety Report 14604776 (Version 1)
Quarter: 2018Q1

REPORT INFORMATION
  Report Type: Spontaneous
  Country: GB (occurrence: GB)
  Receive Date: 20180306
  Receipt Date: 20180306
  Transmission Date: 20180509
  Serious: Yes (Life-Threatening)
  Sender: FDA-Public Use
  Company Number: GB-FRESENIUS KABI-FK201802633

PATIENT
  Age: 37 Year
  Sex: Female

DRUGS (2)
  1. METHYLPREDNISOLONE (MANUFACTURER UNKNOWN) [Suspect]
     Active Substance: METHYLPREDNISOLONE
     Indication: MYOCARDITIS
     Route: 042
  2. UNSPECIFIED OPIATES [Suspect]
     Active Substance: UNSPECIFIED INGREDIENT
     Indication: MYOCARDITIS
     Route: 065

REACTIONS (5)
  - Respiratory failure [Recovered/Resolved]
  - Cardiogenic shock [Recovered/Resolved]
  - Circulatory collapse [Recovered/Resolved]
  - Condition aggravated [Recovered/Resolved]
  - Phaeochromocytoma crisis [Recovered/Resolved]
